FAERS Safety Report 5713684-2 (Version None)
Quarter: 2008Q2

REPORT INFORMATION
  Report Type: 
  Country: None (occurrence: None)
  Receive Date: 20080418
  Receipt Date: 20080407
  Transmission Date: 20081010
  Serious: Yes (Death)
  Sender: FDA-Public Use
  Company Number: TR-1165781

PATIENT
  Age: 55 Year
  Sex: Male

DRUGS (1)
  1. CYCLOGYL [Suspect]
     Indication: FUNDOSCOPY
     Dosage: 6 GTTS OU OPHTHALMIC
     Route: 047

REACTIONS (7)
  - BLOOD GLUCOSE INCREASED [None]
  - BRAIN STEM HAEMORRHAGE [None]
  - DIZZINESS [None]
  - HAEMANGIOMA [None]
  - HEADACHE [None]
  - LOSS OF CONSCIOUSNESS [None]
  - VOMITING [None]
